FAERS Safety Report 8764709 (Version 1)
Quarter: 2012Q4

REPORT INFORMATION
  Report Type: 
  Country: US (occurrence: US)
  Receive Date: 20120831
  Receipt Date: 20120831
  Transmission Date: 20130627
  Serious: No
  Sender: FDA-Public Use
  Company Number: US-PFIZER INC-2012213956

PATIENT
  Age: 74 Year
  Sex: Female

DRUGS (8)
  1. GEMCITABINE HYDROCHLORIDE [Suspect]
     Indication: SARCOMA
     Route: 065
  2. GEMCITABINE HYDROCHLORIDE [Suspect]
     Indication: PHAEOCHROMOCYTOMA
  3. DOXORUBICIN HCL [Suspect]
     Indication: SARCOMA
     Route: 065
  4. DOXORUBICIN HCL [Suspect]
     Indication: PHAEOCHROMOCYTOMA
  5. DOCETAXEL [Suspect]
     Indication: SARCOMA
     Route: 065
  6. DOCETAXEL [Suspect]
     Indication: PHAEOCHROMOCYTOMA
  7. PAZOPANIB [Suspect]
     Indication: SARCOMA
     Route: 048
  8. PAZOPANIB [Suspect]
     Indication: PHAEOCHROMOCYTOMA

REACTIONS (2)
  - Disease progression [Not Recovered/Not Resolved]
  - Sarcoma [Not Recovered/Not Resolved]
